FAERS Safety Report 8540105-7 (Version None)
Quarter: 2012Q3

REPORT INFORMATION
  Report Type: 
  Country: None (occurrence: None)
  Receive Date: 20120726
  Receipt Date: 20120723
  Transmission Date: 20120928
  Serious: Yes (Hospitalization, Other)
  Sender: FDA-Public Use
  Company Number: PHHY2011JP111352

PATIENT
  Age: 32 Year
  Sex: Female
  Weight: 63 kg

DRUGS (9)
  1. PROPOFOL [Concomitant]
  2. FENTANYL [Concomitant]
  3. APRESOLINE [Suspect]
     Dosage: 6 MG, (INJECTION), UNK
     Route: 042
  4. MIDAZOLAM [Concomitant]
  5. NICARDIPINE HCL [Concomitant]
  6. APRESOLINE [Suspect]
     Indication: BLOOD PRESSURE
     Dosage: UNK UKN, UNK
     Route: 048
  7. PREDNISOLONE [Concomitant]
     Indication: APLASTIC ANAEMIA
     Route: 048
  8. ROCURONIUM BROMIDE [Concomitant]
  9. CYCLOSPORINE [Suspect]
     Indication: APLASTIC ANAEMIA
     Dosage: 200 MG, DAILY
     Route: 048

REACTIONS (9)
  - HYPERTENSION [None]
  - RENAL IMPAIRMENT [None]
  - GESTATIONAL HYPERTENSION [None]
  - PREMATURE DELIVERY [None]
  - OEDEMA [None]
  - CHORIOAMNIONITIS [None]
  - PROTEINURIA [None]
  - FOETAL DISORDER [None]
  - MATERNAL EXPOSURE DURING PREGNANCY [None]
